FAERS Safety Report 11419095 (Version 5)
Quarter: 2016Q3

REPORT INFORMATION
  Report Type: Report from Study
  Country: BR (occurrence: BR)
  Receive Date: 20150826
  Receipt Date: 20160906
  Transmission Date: 20161109
  Serious: Yes (Hospitalization, Disabling, Other)
  Sender: FDA-Public Use
  Company Number: BR-ROCHE-1519472

PATIENT
  Sex: Female
  Weight: 65 kg

DRUGS (16)
  1. MABTHERA [Suspect]
     Active Substance: RITUXIMAB
     Indication: RHEUMATOID ARTHRITIS
     Dosage: ON 26/MAY/2015, RECEIVED ONOTHER DOSE?MOSR RECENT DOSE ON 15/JAN/2016
     Route: 042
     Dates: start: 20110425, end: 20160101
  2. TRAMAL [Suspect]
     Active Substance: TRAMADOL
     Indication: PRODUCT USED FOR UNKNOWN INDICATION
     Route: 065
  3. LIPITOR [Concomitant]
     Active Substance: ATORVASTATIN CALCIUM
  4. PURAN [Concomitant]
     Active Substance: LEVOTHYROXINE SODIUM
     Indication: HYPOTHYROIDISM
     Dosage: CAPSULE OR TABLET, NOT SPECIFIED
     Route: 065
  5. VITAMIN B COMPLEX [Concomitant]
     Active Substance: CYANOCOBALAMIN\DEXPANTHENOL\NIACINAMIDE\PYRIDOXINE HYDROCHLORIDE\RIBOFLAVIN 5^-PHOSPHATE SODIUM\THIAMINE HYDROCHLORIDE\VITAMIN B COMPLEX
     Dosage: CAPSULE OR TABLET, NOT SPECIFIED
     Route: 065
  6. AVALOX [Suspect]
     Active Substance: MOXIFLOXACIN HYDROCHLORIDE
     Indication: PRODUCT USED FOR UNKNOWN INDICATION
     Route: 065
  7. MABTHERA [Suspect]
     Active Substance: RITUXIMAB
     Dosage: LAST DOSE RECEIVED ON 26-MAY-2015
     Route: 042
     Dates: start: 20150501
  8. ARAVA [Concomitant]
     Active Substance: LEFLUNOMIDE
     Indication: RHEUMATOID ARTHRITIS
     Dosage: CAPSULE OR TABLET, NOT SPECIFIED
     Route: 065
  9. TORLOS [Concomitant]
     Indication: BLOOD PRESSURE ABNORMAL
     Dosage: CAPSULE OR TABLET, NOT SPECIFIED
     Route: 065
  10. OMEGA 3 [Concomitant]
     Active Substance: OMEGA-3 FATTY ACIDS
  11. SIMVASTATIN. [Concomitant]
     Active Substance: SIMVASTATIN
  12. ATORVASTATIN [Concomitant]
     Active Substance: ATORVASTATIN
     Dosage: CAPSULE OR TABLET, NOT SPECIFIED
     Route: 065
  13. NPH INSULIN [Concomitant]
     Active Substance: INSULIN BEEF
     Route: 065
  14. MABTHERA [Suspect]
     Active Substance: RITUXIMAB
     Dosage: MOST RECENT DOSE
     Route: 042
     Dates: start: 20160115
  15. INSULIN [Concomitant]
     Active Substance: INSULIN NOS
     Route: 065
  16. OMEPRAZOLE. [Concomitant]
     Active Substance: OMEPRAZOLE
     Indication: GASTRIC DISORDER
     Dosage: CAPSULE OR TABLET, NOT SPECIFIED
     Route: 065

REACTIONS (12)
  - Abasia [Unknown]
  - Arthralgia [Unknown]
  - Bacterial infection [Unknown]
  - Pain [Not Recovered/Not Resolved]
  - Drug hypersensitivity [Unknown]
  - Asthma [Unknown]
  - Cataract [Not Recovered/Not Resolved]
  - Arthropathy [Not Recovered/Not Resolved]
  - Arthropathy [Unknown]
  - Abasia [Not Recovered/Not Resolved]
  - Speech disorder [Not Recovered/Not Resolved]
  - Blood triglycerides abnormal [Unknown]

NARRATIVE: CASE EVENT DATE: 2014
